FAERS Safety Report 5569882-4 (Version None)
Quarter: 2007Q4

REPORT INFORMATION
  Report Type: 
  Country: None (occurrence: None)
  Receive Date: 20071220
  Receipt Date: 20070320
  Transmission Date: 20080405
  Serious: No
  Sender: FDA-Public Use
  Company Number: US-ABBOTT-07P-163-0363768-00

PATIENT
  Sex: Female
  Weight: 65.83 kg

DRUGS (3)
  1. OMNICEF [Suspect]
     Indication: EAR INFECTION
     Route: 048
     Dates: start: 20070309, end: 20070312
  2. OMNICEF [Suspect]
     Indication: PHARYNGITIS
  3. SERTRALINE HYDROCHLORIDE [Concomitant]
     Indication: DEPRESSION
     Route: 048

REACTIONS (3)
  - ABDOMINAL DISCOMFORT [None]
  - DIARRHOEA [None]
  - NAUSEA [None]
